FAERS Safety Report 5257580-6 (Version None)
Quarter: 2007Q1

REPORT INFORMATION
  Report Type: 
  Country: None (occurrence: None)
  Receive Date: 20070302
  Receipt Date: 20070221
  Transmission Date: 20070707
  Serious: Yes (Death, Hospitalization)
  Sender: FDA-Public Use
  Company Number: 153226ISR

PATIENT
  Sex: Female

DRUGS (1)
  1. FUROSEMIDE [Suspect]
     Dosage: 100 MG (50 MG, 2 IN 1 D) ??
     Dates: start: 20060315

REACTIONS (7)
  - ATRIAL SEPTAL DEFECT [None]
  - CONVULSION [None]
  - DEHYDRATION [None]
  - DRUG TOXICITY [None]
  - HYPOVOLAEMIA [None]
  - HYPOXIC ENCEPHALOPATHY [None]
  - OVERDOSE [None]
